FAERS Safety Report 6463336-9 (Version None)
Quarter: 2009Q4

REPORT INFORMATION
  Report Type: 
  Country: None (occurrence: None)
  Receive Date: 20091130
  Receipt Date: 20090629
  Transmission Date: 20100525
  Serious: Yes (Hospitalization)
  Sender: FDA-Public Use
  Company Number: US-AMGEN-QUU351676

PATIENT
  Sex: Female
  Weight: 80.8 kg

DRUGS (2)
  1. ENBREL [Suspect]
     Indication: PSORIATIC ARTHROPATHY
     Route: 058
     Dates: start: 20030601
  2. GLUCOTROL [Concomitant]
     Dates: start: 20061102

REACTIONS (2)
  - ADENOSQUAMOUS CELL LUNG CANCER [None]
  - INFLAMMATORY PAIN [None]
